FAERS Safety Report 4877333-8 (Version None)
Quarter: 2006Q1

REPORT INFORMATION
  Report Type: 
  Country: None (occurrence: None)
  Receive Date: 20060109
  Receipt Date: 20060105
  Transmission Date: 20060701
  Serious: Yes (Hospitalization)
  Sender: FDA-Public Use
  Company Number: 2005-12-1398

PATIENT
  Age: 82 Year
  Sex: Female

DRUGS (10)
  1. INTRON A [Suspect]
     Indication: CARCINOID TUMOUR
     Dosage: SEE IMAGE
     Route: 058
     Dates: start: 19991001, end: 20000901
  2. INTRON A [Suspect]
     Indication: LYMPHOMA
     Dosage: SEE IMAGE
     Route: 058
     Dates: start: 19991001, end: 20000901
  3. INTRON A [Suspect]
     Indication: CARCINOID TUMOUR
     Dosage: SEE IMAGE
     Route: 058
     Dates: start: 19991001
  4. INTRON A [Suspect]
     Indication: LYMPHOMA
     Dosage: SEE IMAGE
     Route: 058
     Dates: start: 19991001
  5. INTRON A [Suspect]
     Indication: CARCINOID TUMOUR
     Dosage: SEE IMAGE
     Route: 058
     Dates: start: 20010515
  6. INTRON A [Suspect]
     Indication: LYMPHOMA
     Dosage: SEE IMAGE
     Route: 058
     Dates: start: 20010515
  7. ENDOXAN [Concomitant]
  8. ADRIBLASTINE [Concomitant]
  9. VEPESID [Concomitant]
  10. ZANOSAR [Concomitant]

REACTIONS (9)
  - COGNITIVE DISORDER [None]
  - CONFUSIONAL STATE [None]
  - DEMENTIA [None]
  - DEMENTIA ALZHEIMER'S TYPE [None]
  - DISORIENTATION [None]
  - DRUG INEFFECTIVE [None]
  - IMPAIRED SELF-CARE [None]
  - LYMPHOMA [None]
  - MEMORY IMPAIRMENT [None]
